FAERS Safety Report 23204180 (Version 2)
Quarter: 2023Q4

REPORT INFORMATION
  Report Type: Report from Study
  Country: US (occurrence: US)
  Receive Date: 20231120
  Receipt Date: 20231129
  Transmission Date: 20240110
  Serious: Yes (Hospitalization)
  Sender: FDA-Public Use
  Company Number: US-JNJFOC-20231135938

PATIENT
  Age: 49 Year
  Sex: Male

DRUGS (3)
  1. SPRAVATO [Suspect]
     Active Substance: ESKETAMINE
     Indication: Depression
     Dosage: ^56 MG, 1 TOTAL DOSE^
     Dates: start: 20230801, end: 20230801
  2. SPRAVATO [Suspect]
     Active Substance: ESKETAMINE
     Dosage: ^84 MG, 6 TOTAL DOSES^
     Dates: start: 20230818, end: 20231109
  3. KETAMINE [Concomitant]
     Active Substance: KETAMINE
     Indication: Depression
     Dosage: INTRAVENOUS KETAMINE ADMINISTERED AT MINDFUL HEALTH SOLUTIONS 1 WEEK AGO AND 3 MONTHS AGO AT THE ER
     Route: 042
     Dates: start: 2023

REACTIONS (4)
  - Hernia [Unknown]
  - Post procedural complication [Unknown]
  - Hypersensitivity [Unknown]
  - Groin infection [Unknown]

NARRATIVE: CASE EVENT DATE: 20230101
